FAERS Safety Report 6769757-9 (Version None)
Quarter: 2010Q2

REPORT INFORMATION
  Report Type: 
  Country: None (occurrence: None)
  Receive Date: 20100615
  Receipt Date: 20100614
  Transmission Date: 20101027
  Serious: Yes (Hospitalization, Other)
  Sender: FDA-Public Use
  Company Number: IT-ROXANE LABORATORIES, INC.-2010-RO-00708RO

PATIENT
  Age: 74 Year
  Sex: Male

DRUGS (11)
  1. PREDNISONE [Suspect]
     Indication: GOUTY ARTHRITIS
     Dosage: 40 MG
     Route: 048
  2. FUROSEMIDE [Suspect]
     Dosage: 125 MG
     Route: 048
  3. RAMIPRIL [Suspect]
     Dosage: 5 MG
     Route: 048
  4. COLCHICINE [Suspect]
     Indication: GOUT
     Dosage: 1 MG
     Route: 048
  5. CARVEDILOL [Suspect]
     Dosage: 18.75 MG
     Route: 048
  6. SIMVASTATIN [Suspect]
     Dosage: 20 MG
     Route: 048
  7. AMIODARONE [Suspect]
     Dosage: 200 MG
     Route: 048
  8. METFORMIN HCL [Suspect]
     Dosage: 750 MG
     Route: 048
  9. OMEPRAZOLE [Suspect]
     Dosage: 20 MG
     Route: 048
  10. WARFARIN [Suspect]
     Dosage: 2.5 MG
     Route: 048
  11. DICLOFENAC SODIUM [Suspect]
     Indication: PAIN

REACTIONS (9)
  - ASCITES [None]
  - ATRIAL FIBRILLATION [None]
  - DIVERTICULUM [None]
  - GASTROINTESTINAL TOXICITY [None]
  - GOUTY ARTHRITIS [None]
  - HYPERURICAEMIA [None]
  - LARGE INTESTINE PERFORATION [None]
  - PERITONEAL DISORDER [None]
  - RENAL FAILURE ACUTE [None]
